FAERS Safety Report 23444903 (Version 1)
Quarter: 2024Q1

REPORT INFORMATION
  Report Type: Spontaneous
  Country: US (occurrence: US)
  Receive Date: 20240125
  Receipt Date: 20240125
  Transmission Date: 20240409
  Serious: Yes (Other)
  Sender: FDA-Public Use
  Company Number: US-ALLERGAN-2241969US

PATIENT
  Age: 35 Year
  Sex: Female
  Weight: 73 kg

DRUGS (5)
  1. KYBELLA [Suspect]
     Active Substance: DEOXYCHOLIC ACID
     Indication: Lipolysis procedure
     Dosage: TIME INTERVAL: AS NECESSARY: DOSE DESC: 2 VIAL (20MG)
     Route: 058
     Dates: start: 20220201, end: 20220201
  2. KYBELLA [Suspect]
     Active Substance: DEOXYCHOLIC ACID
     Indication: Lipolysis procedure
     Dosage: TIME INTERVAL: AS NECESSARY: DOSE DESC: 3 VIALS (30MG)
     Route: 058
     Dates: start: 20210805, end: 20210805
  3. KYBELLA [Suspect]
     Active Substance: DEOXYCHOLIC ACID
     Indication: Lipolysis procedure
     Dosage: TIME INTERVAL: AS NECESSARY: DOSE DESC: 2 VIALS (20MG)
     Route: 058
     Dates: start: 20210416, end: 20210416
  4. IMITREX [Concomitant]
     Active Substance: SUMATRIPTAN SUCCINATE
     Indication: Migraine
     Dosage: TIME INTERVAL: AS NECESSARY
     Route: 065
  5. VENLAFAXINE [Concomitant]
     Active Substance: VENLAFAXINE HYDROCHLORIDE
     Indication: Anxiety
     Route: 065

REACTIONS (4)
  - Deformity [Not Recovered/Not Resolved]
  - Swelling [Recovered/Resolved]
  - Swelling face [Unknown]
  - Musculoskeletal disorder [Unknown]

NARRATIVE: CASE EVENT DATE: 20210416
